FAERS Safety Report 5344233-9 (Version None)
Quarter: 2007Q2

REPORT INFORMATION
  Report Type: 
  Country: None (occurrence: None)
  Receive Date: 20070604
  Receipt Date: 20070522
  Transmission Date: 20071010
  Serious: Yes (Congenital Anomaly)
  Sender: FDA-Public Use
  Company Number: FR-ELI_LILLY_AND_COMPANY-FR200705005656

PATIENT
  Age: 1 Day
  Sex: Female
  Weight: 3.98 kg

DRUGS (1)
  1. PROZAC [Suspect]
     Route: 064
     Dates: end: 20050610

REACTIONS (3)
  - ANORECTAL AGENESIS [None]
  - DRUG EXPOSURE DURING PREGNANCY [None]
  - JAUNDICE NEONATAL [None]
